FAERS Safety Report 23647657 (Version 1)
Quarter: 2024Q1

REPORT INFORMATION
  Report Type: Spontaneous
  Country: CN (occurrence: CN)
  Receive Date: 20240319
  Receipt Date: 20240319
  Transmission Date: 20240410
  Serious: Yes (Other)
  Sender: FDA-Public Use
  Company Number: CN-ELI_LILLY_AND_COMPANY-CN202403004876

PATIENT
  Age: 52 Year
  Sex: Female
  Weight: 64 kg

DRUGS (2)
  1. ALIMTA [Suspect]
     Active Substance: PEMETREXED DISODIUM
     Indication: Lung carcinoma cell type unspecified recurrent
     Dosage: 5 ML, SINGLE
     Route: 041
     Dates: start: 20240104, end: 20240104
  2. IRESSA [Suspect]
     Active Substance: GEFITINIB
     Indication: Lung carcinoma cell type unspecified recurrent
     Dosage: 0.25 MG, DAILY
     Route: 048
     Dates: start: 20240109, end: 20240115

REACTIONS (3)
  - Liver function test abnormal [Recovering/Resolving]
  - Aspartate aminotransferase increased [Recovering/Resolving]
  - Alanine aminotransferase increased [Recovering/Resolving]

NARRATIVE: CASE EVENT DATE: 20240228
